FAERS Safety Report 19057990 (Version 1)
Quarter: 2021Q1

REPORT INFORMATION
  Report Type: Spontaneous
  Country: US (occurrence: US)
  Receive Date: 20210325
  Receipt Date: 20210325
  Transmission Date: 20210420
  Serious: Yes (Hospitalization)
  Sender: FDA-Public Use
  Company Number: None

PATIENT
  Age: 54 Year

DRUGS (14)
  1. CITALOPRAM [Concomitant]
     Active Substance: CITALOPRAM HYDROBROMIDE
  2. TOPIRAMATE. [Concomitant]
     Active Substance: TOPIRAMATE
     Dates: start: 20210129
  3. METHOCARBA M [Concomitant]
     Dates: start: 20210125
  4. LOMAIRA [Concomitant]
     Active Substance: PHENTERMINE HYDROCHLORIDE
     Dates: start: 20210203
  5. PANTOPRAZOLE [Concomitant]
     Active Substance: PANTOPRAZOLE
     Dates: start: 20210128
  6. ESTRALNORETH [Concomitant]
     Dates: start: 20210319
  7. LEVOCELI RIZI [Concomitant]
     Dates: start: 20210129
  8. MONTELUKAST [Concomitant]
     Active Substance: MONTELUKAST SODIUM
     Dates: start: 20210304
  9. METHOTREXATE. [Concomitant]
     Active Substance: METHOTREXATE
     Dates: start: 20201117
  10. PREDNISONE. [Concomitant]
     Active Substance: PREDNISONE
  11. ENBREL [Suspect]
     Active Substance: ETANERCEPT
     Indication: COUGH
     Route: 058
     Dates: start: 20200615
  12. FLUTICASONE. [Concomitant]
     Active Substance: FLUTICASONE
     Dates: start: 20210129
  13. FAMOTIDINE. [Concomitant]
     Active Substance: FAMOTIDINE
     Dates: start: 20210129
  14. OZEMPI C [Concomitant]
     Dates: start: 20210323

REACTIONS (2)
  - Therapy interrupted [None]
  - Surgery [None]

NARRATIVE: CASE EVENT DATE: 20210324
